FAERS Safety Report 10151330 (Version 1)
Quarter: 2014Q2

REPORT INFORMATION
  Report Type: Spontaneous
  Country: US (occurrence: US)
  Receive Date: 20140502
  Receipt Date: 20140502
  Transmission Date: 20141212
  Serious: No
  Sender: FDA-Public Use
  Company Number: US-ASTRAZENECA-2013SE58270

PATIENT
  Sex: Male

DRUGS (4)
  1. PRILOSEC OTC [Suspect]
     Indication: DYSPEPSIA
     Route: 048
  2. PRILOSEC OTC [Suspect]
     Indication: ABDOMINAL PAIN UPPER
     Route: 048
  3. PRILOSEC OTC [Suspect]
     Indication: DYSPEPSIA
     Route: 048
  4. PRILOSEC OTC [Suspect]
     Indication: ABDOMINAL PAIN UPPER
     Route: 048

REACTIONS (3)
  - Hypertension [Recovered/Resolved]
  - Condition aggravated [Recovered/Resolved]
  - Dizziness [Recovered/Resolved]
